FAERS Safety Report 19833654 (Version 4)
Quarter: 2021Q3

REPORT INFORMATION
  Report Type: Spontaneous
  Country: US (occurrence: US)
  Receive Date: 20210915
  Receipt Date: 20210927
  Transmission Date: 20211014
  Serious: No
  Sender: FDA-Public Use
  Company Number: US-AMGEN-USASP2021140323

PATIENT
  Age: 54 Year
  Sex: Female
  Weight: 101.1 kg

DRUGS (1)
  1. NEULASTA [Suspect]
     Active Substance: PEGFILGRASTIM
     Indication: NEUTROPENIA
     Dosage: 6 MICROGRAM
     Route: 065

REACTIONS (2)
  - Device use error [Unknown]
  - Device malfunction [Unknown]

NARRATIVE: CASE EVENT DATE: 20210825
